FAERS Safety Report 7354392-4 (Version None)
Quarter: 2011Q1

REPORT INFORMATION
  Report Type: 
  Country: None (occurrence: None)
  Receive Date: 20110316
  Receipt Date: 20110301
  Transmission Date: 20110831
  Serious: Yes (Other)
  Sender: FDA-Public Use
  Company Number: PHHY2010JP73993

PATIENT
  Age: 48 Year
  Sex: Male

DRUGS (6)
  1. ZOMETA [Suspect]
     Dosage: UNK
     Dates: start: 20101028
  2. OXALIPLATIN [Suspect]
     Indication: LARGE INTESTINE CARCINOMA
  3. WARFARIN [Concomitant]
     Dosage: UNK
     Route: 048
  4. AVASTIN [Concomitant]
     Indication: LARGE INTESTINE CARCINOMA
     Dosage: UNK
     Route: 042
  5. ZOMETA [Suspect]
     Indication: METASTASES TO BONE
     Dosage: UNK
     Route: 041
     Dates: start: 20100914
  6. ZOMETA [Suspect]
     Dosage: UNK
     Dates: start: 20101005

REACTIONS (5)
  - RENAL IMPAIRMENT [None]
  - OLIGURIA [None]
  - HAEMATOCHEZIA [None]
  - HAEMATURIA [None]
  - BLOOD CREATININE INCREASED [None]
